FAERS Safety Report 14311510 (Version 2)
Quarter: 2018Q1

REPORT INFORMATION
  Report Type: Spontaneous
  Country: DE (occurrence: DE)
  Receive Date: 20171221
  Receipt Date: 20180226
  Transmission Date: 20180509
  Serious: Yes (Death, Hospitalization, Other)
  Sender: FDA-Public Use
  Company Number: DE-WEST-WARD PHARMACEUTICALS CORP.-DE-H14001-17-04980

PATIENT
  Age: 71 Year
  Sex: Female
  Weight: 60 kg

DRUGS (6)
  1. CISPLATIN. [Suspect]
     Active Substance: CISPLATIN
     Indication: OESOPHAGEAL CANCER METASTATIC
     Dosage: LAST DOSE PRIOR TO SAE ON 05/DEC/2012
     Route: 042
     Dates: start: 20121114, end: 20121205
  2. HERCEPTIN [Suspect]
     Active Substance: TRASTUZUMAB
     Indication: METASTATIC GASTRIC CANCER
     Dosage: SECOND CYCLE, LAST DOSE PRIOR TO SAE ON 05/DEC/2012
     Route: 042
     Dates: start: 20121114, end: 20121205
  3. 5-FU [Suspect]
     Active Substance: FLUOROURACIL
     Indication: OESOPHAGEAL CANCER METASTATIC
     Dosage: LAST DOSE PRIOR TO SAE ON 05/DEC/2012
     Route: 042
     Dates: start: 20121205, end: 20121225
  4. HERCEPTIN [Suspect]
     Active Substance: TRASTUZUMAB
     Dosage: SECOND CYCLE, LAST DOSE PRIOR TO SAE ON 05/DEC/2012
     Route: 042
     Dates: start: 20121205, end: 20121225
  5. XELODA [Suspect]
     Active Substance: CAPECITABINE
     Indication: OESOPHAGEAL CANCER METASTATIC
     Route: 048
     Dates: start: 20121114, end: 20121204
  6. CISPLATIN. [Suspect]
     Active Substance: CISPLATIN
     Route: 042
     Dates: start: 20121205, end: 20121225

REACTIONS (9)
  - Upper gastrointestinal haemorrhage [Recovered/Resolved]
  - Dyspnoea [Fatal]
  - General physical health deterioration [Fatal]
  - Circulatory collapse [Recovered/Resolved]
  - Arrhythmia [Recovered/Resolved]
  - Asthenia [Recovered/Resolved]
  - Vomiting [Recovered/Resolved]
  - Hypovolaemia [Recovered/Resolved]
  - Nausea [Recovered/Resolved]

NARRATIVE: CASE EVENT DATE: 20121114
